FAERS Safety Report 9635058 (Version 1)
Quarter: 2013Q4

REPORT INFORMATION
  Report Type: Spontaneous
  Country: US (occurrence: None)
  Receive Date: 20131017
  Receipt Date: 20131017
  Transmission Date: 20140711
  Serious: Yes (Other)
  Sender: FDA-Public Use
  Company Number: CO-OR-AU-2013-148

PATIENT
  Age: 25 Year
  Sex: Male

DRUGS (5)
  1. PREDNISOLONE (PREDNISOLONE) [Suspect]
     Indication: IMMUNOSUPPRESSION
  2. TACROLIMUS [Suspect]
     Indication: IMMUNOSUPPRESSION
  3. MYCOPHENOLATE MOFETIL [Suspect]
     Indication: IMMUNOSUPPRESSION
  4. VALGANCICLOVIR [Concomitant]
  5. GANCICLOVIR [Concomitant]

REACTIONS (3)
  - Oesophageal ulcer [None]
  - Odynophagia [None]
  - Dysphagia [None]
